FAERS Safety Report 11504542 (Version 1)
Quarter: 2015Q3

REPORT INFORMATION
  Report Type: Spontaneous
  Country: US (occurrence: US)
  Receive Date: 20150915
  Receipt Date: 20150915
  Transmission Date: 20151125
  Serious: Yes (Other)
  Sender: FDA-Public Use
  Company Number: US-ROCHE-1004025

PATIENT

DRUGS (3)
  1. PEGASYS [Suspect]
     Active Substance: PEGINTERFERON ALFA-2A
     Indication: PRODUCT USED FOR UNKNOWN INDICATION
     Dosage: FOR 3 WEEKS
     Route: 065
  2. RIBAVIRIN. [Concomitant]
     Active Substance: RIBAVIRIN
     Indication: PRODUCT USED FOR UNKNOWN INDICATION
     Dosage: FOR 3 WEEKS
     Route: 065
  3. TELAPREVIR [Concomitant]
     Active Substance: TELAPREVIR
     Dosage: FOR 3 WEEKS
     Route: 065

REACTIONS (1)
  - Aplastic anaemia [Unknown]
